FAERS Safety Report 15021033 (Version 11)
Quarter: 2019Q4

REPORT INFORMATION
  Report Type: Report from Study
  Country: JP (occurrence: JP)
  Receive Date: 20180618
  Receipt Date: 20191205
  Transmission Date: 20200122
  Serious: Yes (Death, Hospitalization)
  Sender: FDA-Public Use
  Company Number: JP-EISAI MEDICAL RESEARCH-EC-2018-041271

PATIENT
  Age: 67 Year
  Sex: Female
  Weight: 39 kg

DRUGS (32)
  1. ASPARA-CA [Concomitant]
     Active Substance: CALCIUM ASPARTATE
  2. THYRADIN S [Concomitant]
     Active Substance: LEVOTHYROXINE SODIUM
  3. LAC-B [Concomitant]
     Active Substance: BIFIDOBACTERIUM SPP.
  4. PREDNISOLONE. [Concomitant]
     Active Substance: PREDNISOLONE
  5. DAIPHEN [Concomitant]
     Active Substance: SULFAMETHOXAZOLE\TRIMETHOPRIM
  6. HIRUDOID [Concomitant]
     Active Substance: GLYCOSAMINOGLYCANS
  7. AMLODIPINE [Concomitant]
     Active Substance: AMLODIPINE BESYLATE
  8. OXINORM [Concomitant]
  9. LENVATINIB [Suspect]
     Active Substance: LENVATINIB
     Route: 048
     Dates: start: 20180507, end: 20180516
  10. LENVATINIB [Suspect]
     Active Substance: LENVATINIB
     Route: 048
     Dates: start: 20180524, end: 20180610
  11. ZOLPIDEM [Concomitant]
     Active Substance: ZOLPIDEM TARTRATE
  12. LENVATINIB [Suspect]
     Active Substance: LENVATINIB
     Route: 048
     Dates: start: 20180706, end: 20180822
  13. MOHRUS TAPE [Concomitant]
     Active Substance: KETOPROFEN
  14. KETOPROFEN. [Concomitant]
     Active Substance: KETOPROFEN
  15. MAGNESIUM OXIDE. [Concomitant]
     Active Substance: MAGNESIUM OXIDE
  16. GLIMEPIRIDE. [Concomitant]
     Active Substance: GLIMEPIRIDE
  17. JANUVIA [Concomitant]
     Active Substance: SITAGLIPTIN PHOSPHATE
  18. PEMBROLIZUMAB. [Suspect]
     Active Substance: PEMBROLIZUMAB
     Indication: CLEAR CELL RENAL CELL CARCINOMA
     Route: 041
     Dates: start: 20180419, end: 20180531
  19. OXYCONTIN TR [Concomitant]
     Active Substance: OXYCODONE HYDROCHLORIDE
  20. PIOGLITAZONE. [Concomitant]
     Active Substance: PIOGLITAZONE
  21. RANMARK [Concomitant]
     Active Substance: DENOSUMAB
  22. KERATINAMIN [Concomitant]
     Active Substance: UREA
  23. ALBUMIN TANNATE [Concomitant]
     Active Substance: ALBUMIN BOVINE\TANNIC ACID
  24. CALONAL [Concomitant]
     Active Substance: ACETAMINOPHEN
  25. SHIMBUTO [Concomitant]
     Active Substance: HERBALS
  26. LENVATINIB [Suspect]
     Active Substance: LENVATINIB
     Indication: CLEAR CELL RENAL CELL CARCINOMA
     Route: 048
     Dates: start: 20180419, end: 20180428
  27. ALFACALCIDOL [Concomitant]
     Active Substance: ALFACALCIDOL
  28. AZUNOL GARGLE [Concomitant]
  29. NOVAMIN [Concomitant]
  30. ETODOLAC. [Concomitant]
     Active Substance: ETODOLAC
  31. LANSOPRAZOLE. [Concomitant]
     Active Substance: LANSOPRAZOLE
  32. DENOTAS [Concomitant]
     Active Substance: CALCIUM CARBONATE\CHOLECALCIFEROL\MAGNESIUM CARBONATE

REACTIONS (2)
  - Enterocolitis [Recovering/Resolving]
  - Cancer pain [Recovering/Resolving]

NARRATIVE: CASE EVENT DATE: 20180611
